FAERS Safety Report 8544068-X (Version None)
Quarter: 2012Q3

REPORT INFORMATION
  Report Type: 
  Country: None (occurrence: None)
  Receive Date: 20120719
  Receipt Date: 20120719
  Transmission Date: 20120928
  Serious: No
  Sender: FDA-Public Use
  Company Number: None

PATIENT
  Age: 66 Year
  Weight: 63.5036 kg

DRUGS (1)
  1. XALATAN [Suspect]
     Indication: INTRAOCULAR PRESSURE INCREASED
     Dosage: ONE DROP ONCE A DAY AT BEDT INTRAOCULAR
     Route: 031
     Dates: start: 20120713, end: 20120715

REACTIONS (2)
  - OCULAR HYPERAEMIA [None]
  - EYE PAIN [None]
